FAERS Safety Report 8448917-5 (Version None)
Quarter: 2012Q2

REPORT INFORMATION
  Report Type: 
  Country: None (occurrence: None)
  Receive Date: 20120619
  Receipt Date: 20120612
  Transmission Date: 20120825
  Serious: Yes (Hospitalization)
  Sender: FDA-Public Use
  Company Number: JP-GLAXOSMITHKLINE-B0779138A

PATIENT
  Sex: Male
  Weight: 59 kg

DRUGS (10)
  1. LAMICTAL [Suspect]
     Indication: BIPOLAR DISORDER
     Dosage: 25MG PER DAY
     Route: 048
     Dates: start: 20111227, end: 20120109
  2. LAMICTAL [Suspect]
     Dosage: 50MG PER DAY
     Route: 048
     Dates: start: 20120110, end: 20120122
  3. ASPIRIN [Concomitant]
     Route: 048
  4. LULLAN [Concomitant]
     Dosage: 8MG PER DAY
     Route: 048
  5. LITHIUM CARBONATE [Concomitant]
     Dosage: 600MG PER DAY
     Route: 048
  6. URALYT [Concomitant]
     Route: 048
  7. ALLOPURINOL [Concomitant]
     Route: 048
  8. PAXIL [Concomitant]
     Route: 048
  9. SILECE [Concomitant]
     Dosage: 2MG PER DAY
     Route: 065
  10. LENDORMIN [Concomitant]
     Dosage: .25MG PER DAY
     Route: 048

REACTIONS (10)
  - OCULAR HYPERAEMIA [None]
  - ERYTHEMA OF EYELID [None]
  - EYE DISCHARGE [None]
  - STEVENS-JOHNSON SYNDROME [None]
  - LIP EROSION [None]
  - DRUG ERUPTION [None]
  - ERYTHEMA [None]
  - ORAL MUCOSA EROSION [None]
  - PAPULE [None]
  - SCAB [None]
